FAERS Safety Report 18523786 (Version 2)
Quarter: 2020Q4

REPORT INFORMATION
  Report Type: Spontaneous
  Country: US (occurrence: US)
  Receive Date: 20201119
  Receipt Date: 20201127
  Transmission Date: 20210114
  Serious: No
  Sender: FDA-Public Use
  Company Number: US-BEH-2020125168

PATIENT
  Sex: Female

DRUGS (2)
  1. HIZENTRA [Suspect]
     Active Substance: HUMAN IMMUNOGLOBULIN G
     Indication: HYPOGAMMAGLOBULINAEMIA
     Dosage: 10 GRAM, QOW
     Route: 058
     Dates: start: 20201019
  2. HIZENTRA [Suspect]
     Active Substance: HUMAN IMMUNOGLOBULIN G
     Indication: HUMORAL IMMUNE DEFECT
     Dosage: 10 GRAM, QOW
     Route: 058
     Dates: start: 202010

REACTIONS (4)
  - Pain [Unknown]
  - Headache [Not Recovered/Not Resolved]
  - Pyrexia [Recovering/Resolving]
  - Swelling [Recovering/Resolving]
